FAERS Safety Report 4912062-3 (Version None)
Quarter: 2006Q1

REPORT INFORMATION
  Report Type: 
  Country: None (occurrence: None)
  Receive Date: 20060213
  Receipt Date: 20060202
  Transmission Date: 20060701
  Serious: Yes (Other)
  Sender: FDA-Public Use
  Company Number: 2006018629

PATIENT
  Sex: Female
  Weight: 60 kg

DRUGS (1)
  1. CELEBREX [Suspect]
     Indication: TENDON DISORDER
     Dosage: 200 MG, ORAL
     Route: 048
     Dates: start: 20060114, end: 20060119

REACTIONS (1)
  - VISUAL DISTURBANCE [None]
